FAERS Safety Report 4599057-7 (Version None)
Quarter: 2005Q1

REPORT INFORMATION
  Report Type: 
  Country: None (occurrence: None)
  Receive Date: 20050302
  Receipt Date: 20050214
  Transmission Date: 20050727
  Serious: Yes (Hospitalization)
  Sender: FDA-Public Use
  Company Number: DSA_2157_2005

PATIENT
  Age: 60 Year
  Sex: Female
  Weight: 79 kg

DRUGS (1)
  1. EFLORNITHINE HYDROCHLORIDE /PLACEBO [Suspect]
     Indication: HIRSUTISM
     Dosage: 1 DF BID TP
     Dates: start: 20041202

REACTIONS (1)
  - TACHYARRHYTHMIA [None]
